FAERS Safety Report 23657401 (Version 1)
Quarter: 2024Q1

REPORT INFORMATION
  Report Type: Other
  Country: CN (occurrence: CN)
  Receive Date: 20240321
  Receipt Date: 20240321
  Transmission Date: 20240410
  Serious: Yes (Hospitalization, Other)
  Sender: FDA-Public Use
  Company Number: CN-QILU PHARMACEUTICAL (HAINAN) CO.  LTD.-QLH-000034-2024

PATIENT
  Age: 65 Year
  Sex: Male
  Weight: 60 kg

DRUGS (4)
  1. IRINOTECAN HYDROCHLORIDE [Suspect]
     Active Substance: IRINOTECAN HYDROCHLORIDE
     Indication: Colon cancer
     Dosage: TOTAL DOSE: 280 MG ON DAY 1 FOR EVERY 2 WEEKS AS A PART OF FOLFIRI REGIMEN CHEMOTHERAPY
     Route: 041
     Dates: start: 20231212, end: 20231212
  2. LEUCOVORIN CALCIUM [Suspect]
     Active Substance: LEUCOVORIN CALCIUM
     Indication: Colon cancer
     Dosage: TOTAL DOSE: 0.6 G PER DAY, AS A PART OF FOLFIRI REGIMEN CHEMOTHERAPY
     Route: 041
     Dates: start: 20231212, end: 20231212
  3. FLUOROURACIL [Suspect]
     Active Substance: FLUOROURACIL
     Indication: Colon cancer
     Dosage: TOTAL DOSE: 3.5 G PER DAY PUMPED FOR 46 HOURS, AS A PART OF FOLFIRI REGIMEN CHEMOTHERAPY
     Route: 065
     Dates: start: 20231212, end: 20231212
  4. BEVACIZUMAB [Suspect]
     Active Substance: BEVACIZUMAB
     Indication: Colon cancer
     Dosage: TOTAL DOSE: 380 MG PER DAY
     Route: 065
     Dates: start: 20231214, end: 20231214

REACTIONS (1)
  - Nephrotic syndrome [Unknown]

NARRATIVE: CASE EVENT DATE: 20240220
